FAERS Safety Report 16741610 (Version 3)
Quarter: 2021Q1

REPORT INFORMATION
  Report Type: Spontaneous
  Country: AT (occurrence: AT)
  Receive Date: 20190826
  Receipt Date: 20210326
  Transmission Date: 20210419
  Serious: Yes (Other)
  Sender: FDA-Public Use
  Company Number: AT-TAKEDA-2019TUS049040

PATIENT
  Age: 71 Year
  Sex: Female

DRUGS (9)
  1. ICLUSIG [Suspect]
     Active Substance: PONATINIB
     Dosage: 45 MILLIGRAM, QD
     Route: 048
     Dates: start: 2020
  2. IBRANCE [Suspect]
     Active Substance: PALBOCICLIB
     Dosage: 100 MILLIGRAM, QD
     Route: 065
     Dates: start: 2020
  3. ICLUSIG [Suspect]
     Active Substance: PONATINIB
     Indication: CHRONIC MYELOID LEUKAEMIA
     Dosage: 45 MILLIGRAM, QD
     Route: 065
     Dates: start: 201702
  4. BOSUTINIB [Suspect]
     Active Substance: BOSUTINIB
     Indication: CHRONIC MYELOID LEUKAEMIA
     Dosage: UNK
     Route: 065
  5. IBRANCE [Suspect]
     Active Substance: PALBOCICLIB
     Indication: CHRONIC MYELOID LEUKAEMIA
     Dosage: 125 MILLIGRAM, QD
     Route: 065
     Dates: start: 2020
  6. IMATINIB. [Suspect]
     Active Substance: IMATINIB MESYLATE
     Indication: CHRONIC MYELOID LEUKAEMIA
     Dosage: UNK
     Route: 065
  7. ICLUSIG [Suspect]
     Active Substance: PONATINIB
     Dosage: 30 MILLIGRAM, QD
     Route: 048
     Dates: start: 2020
  8. DASATINIB. [Suspect]
     Active Substance: DASATINIB
     Indication: CHRONIC MYELOID LEUKAEMIA
     Dosage: UNK
     Route: 065
  9. NILOTINIB [Suspect]
     Active Substance: NILOTINIB
     Indication: CHRONIC MYELOID LEUKAEMIA
     Dosage: UNK
     Route: 065

REACTIONS (14)
  - Blast crisis in myelogenous leukaemia [Unknown]
  - Therapy non-responder [Unknown]
  - Malaise [Unknown]
  - Neoplasm progression [Unknown]
  - Abdominal pain upper [Unknown]
  - Off label use [Unknown]
  - Neutropenia [Recovered/Resolved]
  - Pancytopenia [Unknown]
  - Cytogenetic analysis abnormal [Unknown]
  - Chronic myeloid leukaemia [Unknown]
  - Leukopenia [Recovered/Resolved]
  - Malignant neoplasm progression [Unknown]
  - Asthenia [Unknown]
  - Cancer pain [Unknown]

NARRATIVE: CASE EVENT DATE: 201906
